FAERS Safety Report 9844380 (Version 1)
Quarter: 2014Q1

REPORT INFORMATION
  Report Type: Spontaneous
  Country: FR (occurrence: None)
  Receive Date: 20140123
  Receipt Date: 20140123
  Transmission Date: 20141002
  Serious: Yes (Other)
  Sender: FDA-Public Use
  Company Number: FR-ZYDUS-002480

PATIENT
  Age: 22 Year
  Sex: Female

DRUGS (1)
  1. TRAMADOL [Suspect]

REACTIONS (3)
  - Cardiac failure [None]
  - Cardiac arrest [None]
  - Shock [None]
